FAERS Safety Report 23457594 (Version 2)
Quarter: 2024Q1

REPORT INFORMATION
  Report Type: Spontaneous
  Country: US (occurrence: US)
  Receive Date: 20240130
  Receipt Date: 20240201
  Transmission Date: 20240410
  Serious: No
  Sender: FDA-Public Use
  Company Number: US-SANDOZ-SDZ2024US009386

PATIENT
  Sex: Female

DRUGS (2)
  1. ALBUTEROL SULFATE [Suspect]
     Active Substance: ALBUTEROL SULFATE
     Indication: Mycobacterial infection
     Dosage: 90MCG/DOS 200DO ,3 TIMES PER DAY
     Route: 048
  2. ALBUTEROL SULFATE [Suspect]
     Active Substance: ALBUTEROL SULFATE
     Indication: Lung disorder

REACTIONS (5)
  - Productive cough [Unknown]
  - Product dose omission issue [Unknown]
  - Off label use [Unknown]
  - Product label issue [Unknown]
  - Device mechanical issue [Unknown]
